FAERS Safety Report 21747323 (Version 1)
Quarter: 2022Q4

REPORT INFORMATION
  Report Type: Spontaneous
  Country: US (occurrence: US)
  Receive Date: 20221219
  Receipt Date: 20221219
  Transmission Date: 20230112
  Serious: Yes (Hospitalization)
  Sender: FDA-Public Use
  Company Number: US-MYLANLABS-2022M1139536

PATIENT
  Age: 31 Year
  Sex: Male

DRUGS (6)
  1. ANASTROZOLE [Suspect]
     Active Substance: ANASTROZOLE
     Indication: Muscle building therapy
     Dosage: 1 MILLIGRAM
     Route: 065
  2. VITAMIN D3 [Suspect]
     Active Substance: CHOLECALCIFEROL
     Indication: Muscle building therapy
     Dosage: UNK UNK, QW (100000 UNITS/ML)
     Route: 058
  3. DANAZOL [Suspect]
     Active Substance: DANAZOL
     Indication: Muscle building therapy
     Dosage: 100 MILLIGRAM, QD
     Route: 048
  4. PRASTERONE [Suspect]
     Active Substance: PRASTERONE
     Indication: Muscle building therapy
     Dosage: 100 MILLIGRAM
     Route: 065
  5. CLOMIPHENE CITRATE [Suspect]
     Active Substance: CLOMIPHENE CITRATE
     Indication: Muscle building therapy
     Dosage: 50 MILLIGRAM
     Route: 065
  6. GONADOTROPHIN, CHORIONIC [Suspect]
     Active Substance: GONADOTROPHIN, CHORIONIC
     Indication: Muscle building therapy
     Dosage: 10000 INTERNATIONAL UNIT, BIWEEKLY
     Route: 030

REACTIONS (2)
  - Drug abuse [Unknown]
  - Off label use [Unknown]
